FAERS Safety Report 12964162 (Version 1)
Quarter: 2016Q4

REPORT INFORMATION
  Report Type: Report from Study
  Country: AR (occurrence: AR)
  Receive Date: 20161122
  Receipt Date: 20161122
  Transmission Date: 20170207
  Serious: Yes (Other)
  Sender: FDA-Public Use
  Company Number: PHHY2016AR159197

PATIENT
  Sex: Female

DRUGS (1)
  1. DIOVAN D [Suspect]
     Active Substance: HYDROCHLOROTHIAZIDE\VALSARTAN
     Indication: HYPERTENSION
     Dosage: 1 DF, QD (MORE THAN 10 YEARS AGO)
     Route: 065

REACTIONS (8)
  - Hypersensitivity [Recovering/Resolving]
  - Hypoacusis [Recovering/Resolving]
  - Fatigue [Recovering/Resolving]
  - Chronic obstructive pulmonary disease [Recovering/Resolving]
  - Sinusitis [Recovering/Resolving]
  - Breast cancer [Recovering/Resolving]
  - Hyposmia [Recovering/Resolving]
  - Dermal cyst [Recovering/Resolving]

NARRATIVE: CASE EVENT DATE: 2011
